FAERS Safety Report 5759364-9 (Version None)
Quarter: 2008Q2

REPORT INFORMATION
  Report Type: 
  Country: None (occurrence: None)
  Receive Date: 20080605
  Receipt Date: 20080602
  Transmission Date: 20081010
  Serious: Yes (Disabling)
  Sender: FDA-Public Use
  Company Number: PT-JNJFOC-20080600143

PATIENT
  Sex: Female
  Weight: 60 kg

DRUGS (10)
  1. TOPAMAX [Suspect]
     Route: 065
  2. TOPAMAX [Suspect]
     Indication: MIGRAINE
     Route: 065
  3. BETAHISTINE HYDROCHLORIDE [Concomitant]
     Route: 048
  4. DEFLAZACORT [Concomitant]
     Route: 048
  5. DESLORATADINE [Concomitant]
     Route: 048
  6. GLUCOSAMINE SULFATE [Concomitant]
     Route: 065
  7. LEVOTHYROXINE SODIUM [Concomitant]
     Route: 048
  8. MOMETASONE FUROATE [Concomitant]
     Route: 055
  9. CIPROFLOXACIN HCL [Concomitant]
     Indication: SINUSITIS
     Route: 048
  10. SODIUM CHLORIDE [Concomitant]
     Route: 065

REACTIONS (5)
  - ABDOMINAL PAIN [None]
  - DISTURBANCE IN ATTENTION [None]
  - DIZZINESS [None]
  - DYSARTHRIA [None]
  - DYSGEUSIA [None]
